FAERS Safety Report 9916025 (Version 1)
Quarter: 2014Q1

REPORT INFORMATION
  Report Type: Spontaneous
  Country: US (occurrence: None)
  Receive Date: 20140219
  Receipt Date: 20140219
  Transmission Date: 20141002
  Serious: Yes (Other)
  Sender: FDA-Public Use
  Company Number: PIN-2014-00002

PATIENT
  Sex: 0

DRUGS (1)
  1. PHOTOFRIN [Suspect]
     Indication: BRAIN NEOPLASM
     Dosage: 2.0 MG KG-1, UNKNOWN

REACTIONS (1)
  - Neurotoxicity [None]
